FAERS Safety Report 9522190 (Version 1)
Quarter: 2013Q1

REPORT INFORMATION
  Report Type: Spontaneous
  Country: US (occurrence: None)
  Receive Date: 20130305
  Receipt Date: 20130305
  Transmission Date: 20140127
  Serious: Yes (Other)
  Sender: FDA-Public Use
  Company Number: 163-21880-12071531

PATIENT
  Sex: 0

DRUGS (6)
  1. COUMADIN (WARFARIN SODIUM) [Concomitant]
  2. REVLIMID [Suspect]
     Indication: AMYLOIDOSIS
     Dosage: 15 MG, 21 IN 28 D, PO
     Route: 048
  3. CYCLOPHOSPHAMIDE (UNKNOWN) [Suspect]
     Indication: AMYLOIDOSIS
     Dosage: 300 MG/M2, DAYS 1, 8, 15, PO
     Route: 048
  4. DEXAMETHASONE (DEXAMETHASONE) (UNKNOWN) [Suspect]
     Indication: AMYLOIDOSIS
     Dosage: 40 MG, DAYS 1, 8, 15, 22, PO
     Route: 048
  5. ASPIRIN (ACETYLSALICYLIC ACID) [Concomitant]
  6. HEPARIN [Concomitant]

REACTIONS (21)
  - Anaemia [None]
  - Thrombocytopenia [None]
  - Oedema [None]
  - Neutropenia [None]
  - Pneumonia [None]
  - Thrombosis [None]
  - Constipation [None]
  - Rash [None]
  - Insomnia [None]
  - Diarrhoea [None]
  - Bacteraemia [None]
  - Muscular weakness [None]
  - Blood creatinine increased [None]
  - Respiratory tract infection [None]
  - Depression [None]
  - Peripheral sensory neuropathy [None]
  - Peripheral motor neuropathy [None]
  - Cognitive disorder [None]
  - Aspartate aminotransferase increased [None]
  - Fatigue [None]
  - Leukopenia [None]
